FAERS Safety Report 19257584 (Version 1)
Quarter: 2021Q2

REPORT INFORMATION
  Report Type: Report from Study
  Country: US (occurrence: US)
  Receive Date: 20210514
  Receipt Date: 20210514
  Transmission Date: 20210717
  Serious: No
  Sender: FDA-Public Use
  Company Number: NVSC2021US108144

PATIENT
  Sex: Male

DRUGS (1)
  1. ENTRESTO [Suspect]
     Active Substance: SACUBITRIL\VALSARTAN
     Indication: ILL-DEFINED DISORDER
     Dosage: 0.5 DF, BID, 24/25MG
     Route: 065

REACTIONS (2)
  - Underdose [Unknown]
  - Wrong technique in product usage process [Unknown]
